FAERS Safety Report 5676904-9 (Version None)
Quarter: 2008Q1

REPORT INFORMATION
  Report Type: 
  Country: None (occurrence: None)
  Receive Date: 20080324
  Receipt Date: 20080319
  Transmission Date: 20080703
  Serious: Yes (Hospitalization)
  Sender: FDA-Public Use
  Company Number: CO-MERCK-0803COL00012

PATIENT

DRUGS (1)
  1. SINGULAIR [Suspect]
     Route: 065

REACTIONS (2)
  - HEPATITIS [None]
  - SEPTIC SHOCK [None]
